FAERS Safety Report 25235724 (Version 1)
Quarter: 2025Q2

REPORT INFORMATION
  Report Type: Spontaneous
  Country: US (occurrence: US)
  Receive Date: 20250424
  Receipt Date: 20250424
  Transmission Date: 20250716
  Serious: Yes (Hospitalization)
  Sender: SAMSUNG BIOEPIS
  Company Number: US-SAMSUNG BIOEPIS-SB-2025-14251

PATIENT
  Age: 55 Year
  Sex: Male

DRUGS (1)
  1. ADALIMUMAB [Suspect]
     Active Substance: ADALIMUMAB
     Indication: Psoriatic arthropathy

REACTIONS (4)
  - Granulomatous liver disease [Recovered/Resolved]
  - Histoplasmosis [Recovered/Resolved]
  - Duodenitis [Unknown]
  - Gastritis [Unknown]
